FAERS Safety Report 10086446 (Version 1)
Quarter: 2014Q2

REPORT INFORMATION
  Report Type: Spontaneous
  Country: FR (occurrence: FR)
  Receive Date: 20140418
  Receipt Date: 20140418
  Transmission Date: 20141212
  Serious: Yes (Congenital Anomaly, Other)
  Sender: FDA-Public Use
  Company Number: FR-PFIZER INC-2014106058

PATIENT
  Sex: 0

DRUGS (4)
  1. ZOLOFT [Suspect]
     Indication: DEPRESSION
     Dosage: UNK
     Route: 064
     Dates: end: 20100730
  2. LEXOMIL [Suspect]
     Indication: ANXIETY
     Dosage: UNK
     Route: 064
     Dates: end: 20100730
  3. NOCTAMID [Suspect]
     Indication: ANXIETY
     Dosage: UNK
     Route: 064
     Dates: end: 20100730
  4. OMNISCAN [Concomitant]
     Indication: NUCLEAR MAGNETIC RESONANCE IMAGING
     Dosage: UNK
     Route: 064
     Dates: start: 20100730, end: 20100730

REACTIONS (2)
  - Foetal exposure during pregnancy [Unknown]
  - Trisomy 21 [Unknown]
